FAERS Safety Report 4808139-3 (Version None)
Quarter: 2005Q4

REPORT INFORMATION
  Report Type: 
  Country: None (occurrence: None)
  Receive Date: 20051021
  Receipt Date: 20030618
  Transmission Date: 20060501
  Serious: No
  Sender: FDA-Public Use
  Company Number: USA030639756

PATIENT
  Age: 80 Year
  Sex: Female

DRUGS (1)
  1. ZYPREXA [Suspect]
     Dosage: 5 MG

REACTIONS (1)
  - EOSINOPHIL COUNT INCREASED [None]
